FAERS Safety Report 23965297 (Version 1)
Quarter: 2024Q2

REPORT INFORMATION
  Report Type: Spontaneous
  Country: ZA (occurrence: None)
  Receive Date: 20240612
  Receipt Date: 20240612
  Transmission Date: 20240716
  Serious: Yes (Hospitalization)
  Sender: FDA-Public Use
  Company Number: 2024A131246

PATIENT
  Age: 55 Year
  Sex: Female

DRUGS (5)
  1. BUDESONIDE\FORMOTEROL [Suspect]
     Active Substance: BUDESONIDE\FORMOTEROL
     Dosage: 120 DOSE 160/4.5 MCG UNKNOWN
     Route: 055
  2. ZOLPIDEM TARTRATE [Concomitant]
     Active Substance: ZOLPIDEM TARTRATE
     Route: 048
  3. RUPALLERG [Concomitant]
     Route: 048
  4. TOPRAZ [Concomitant]
     Route: 048
  5. CLOTRIMAZOLE DIS-CHEM [Concomitant]
     Route: 048

REACTIONS (1)
  - Herpes zoster [Recovered/Resolved]
